FAERS Safety Report 17028654 (Version 1)
Quarter: 2019Q4

REPORT INFORMATION
  Report Type: Spontaneous
  Country: GB (occurrence: GB)
  Receive Date: 20191113
  Receipt Date: 20191113
  Transmission Date: 20200122
  Serious: Yes (Hospitalization)
  Sender: FDA-Public Use
  Company Number: GB-ACCORD-160691

PATIENT
  Age: 83 Year
  Sex: Female

DRUGS (15)
  1. MOVICOL [Concomitant]
     Active Substance: POLYETHYLENE GLYCOL 3350\POTASSIUM CHLORIDE\SODIUM BICARBONATE\SODIUM CHLORIDE
     Dosage: SACHETS LEMON + LIME
     Route: 048
  2. FOLIC ACID. [Concomitant]
     Active Substance: FOLIC ACID
  3. ADCAL-D3 [Concomitant]
     Active Substance: CALCIUM CARBONATE\CHOLECALCIFEROL
  4. OMEPRAZOLE. [Suspect]
     Active Substance: OMEPRAZOLE
     Indication: PRODUCT USED FOR UNKNOWN INDICATION
     Dosage: REPLACED WITH RANITIDINE, IN THE MORNING
     Route: 048
     Dates: end: 20180731
  5. PARACETAMOL [Concomitant]
     Active Substance: ACETAMINOPHEN
  6. SENNA ALEXANDRINA [Concomitant]
     Active Substance: SENNA LEAF
  7. IRON [Concomitant]
     Active Substance: IRON
  8. DOUBLEBASE [Concomitant]
     Active Substance: ISOPROPYL MYRISTATE\PARAFFIN
  9. SIMVASTATIN. [Concomitant]
     Active Substance: SIMVASTATIN
  10. BISOPROLOL [Concomitant]
     Active Substance: BISOPROLOL
  11. DESLORATADINE. [Concomitant]
     Active Substance: DESLORATADINE
  12. FUROSEMIDE. [Suspect]
     Active Substance: FUROSEMIDE
     Indication: PRODUCT USED FOR UNKNOWN INDICATION
     Dosage: WITHHELD FOR ACUTE KIDNEY INJURY TO RESOLVE. WILL BE REVIEWED WITH OEDEMA SYMPTOMS,IN THE MORNING.
     Route: 048
     Dates: start: 20180710, end: 20180731
  13. OILATUM PLUS [Concomitant]
     Dosage: BATH ADDITIVE
  14. CODEINE [Concomitant]
     Active Substance: CODEINE
  15. BECLOMETASONE [Concomitant]
     Active Substance: BECLOMETHASONE DIPROPIONATE
     Route: 045

REACTIONS (2)
  - Acute kidney injury [Recovering/Resolving]
  - Hyponatraemia [Recovering/Resolving]

NARRATIVE: CASE EVENT DATE: 20180731
